FAERS Safety Report 23895971 (Version 2)
Quarter: 2024Q2

REPORT INFORMATION
  Report Type: Spontaneous
  Country: US (occurrence: US)
  Receive Date: 20240524
  Receipt Date: 20240529
  Transmission Date: 20240716
  Serious: Yes (Hospitalization, Disabling, Other)
  Sender: FDA-Public Use
  Company Number: US-PFIZER INC-PV202400048062

PATIENT
  Age: 71 Year
  Sex: Female

DRUGS (25)
  1. HEPARIN SODIUM [Suspect]
     Active Substance: HEPARIN SODIUM
     Dosage: UNK
     Route: 042
     Dates: end: 20230818
  2. PANTOPRAZOLE [Suspect]
     Active Substance: PANTOPRAZOLE
     Dosage: UNK
     Route: 065
     Dates: start: 2022, end: 2022
  3. LONSURF [Suspect]
     Active Substance: TIPIRACIL HYDROCHLORIDE\TRIFLURIDINE
     Indication: Rectal cancer
     Dosage: 60 MILLIGRAM, BID (DAYS 1-5 AND 8-12 OF 28 DAY CYCLE; 100 MG, 3 TABLETS IN MORNING AND 2 IN EVENING)
     Route: 048
     Dates: start: 20230428, end: 20240214
  4. PANITUMUMAB [Suspect]
     Active Substance: PANITUMUMAB
     Dosage: UNK (EVERY 4 WEEKS)
     Dates: start: 20230601, end: 20240214
  5. VECTIBIX [Suspect]
     Active Substance: PANITUMUMAB
     Indication: Rectal cancer
     Dosage: UNK UNK, Q4WEEKS
     Route: 065
     Dates: start: 20230601, end: 20231207
  6. VECTIBIX [Suspect]
     Active Substance: PANITUMUMAB
     Dosage: UNK UNK, Q4WEEKS
     Route: 065
     Dates: start: 2023, end: 20240214
  7. BEVACIZUMAB [Concomitant]
     Active Substance: BEVACIZUMAB
     Dosage: UNK
  8. TYLENOL [Concomitant]
     Active Substance: ACETAMINOPHEN
     Dosage: 3900 MILLIGRAM(S) (650 MILLIGRAM(S), 1 IN 4 HOUR)
     Route: 048
  9. ZOFRAN [Concomitant]
     Active Substance: ONDANSETRON HYDROCHLORIDE
     Indication: Nausea
     Dosage: 24.0 MILLIGRAM(S) (8 MILLIGRAM(S), 1 IN 8 HOUR)
     Route: 048
  10. MULTIVITAMIN N [AMINOBENZOIC ACID;ASCORBIC ACID;BETAINE HYDROCHLORIDE; [Concomitant]
     Dosage: TAKE 2 EACH BY MOUTH DAILY
     Route: 048
  11. VENTOLIN HFA [Concomitant]
     Active Substance: ALBUTEROL SULFATE
     Dosage: UNK (AER)
  12. DOXYCYCLINE HYCLATE [Concomitant]
     Active Substance: DOXYCYCLINE HYCLATE
  13. MAGNESIUM OXIDE [Concomitant]
     Active Substance: MAGNESIUM OXIDE
     Dosage: UNK MILLIGRAM
  14. PREDNISONE [Concomitant]
     Active Substance: PREDNISONE
     Dosage: UNK
  15. COMPAZINE [Concomitant]
     Active Substance: PROCHLORPERAZINE MALEATE
     Dosage: 40 MILLIGRAM(S) (10 MILLIGRAM(S), 1 IN 6 HOUR)
     Route: 048
  16. CRANBERRY [Concomitant]
     Active Substance: CRANBERRY
     Dosage: 12600 MILLIGRAM(S) (4200 MILLIGRAM(S), 1 IN 8 HOUR)
     Route: 048
  17. SIMETHICONE (DIMETHICONE) [Concomitant]
     Active Substance: DIMETHICONE
     Dosage: 320 MILLIGRAM(S) (80 MILLIGRAM(S), 1 IN 6 HOUR), CHEW AS NEEDED
     Route: 048
  18. CALTRATE WITH VITAMIN D [Concomitant]
     Active Substance: CALCIUM CARBONATE\CHOLECALCIFEROL
     Dosage: 1800 MILLIGRAM(S) (600 MILLIGRAM(S), 1 IN 8 HOUR)
     Route: 048
  19. ATIVAN [Concomitant]
     Active Substance: LORAZEPAM
     Indication: Nausea
     Dosage: 1.5 MILLILITRE(S) (0.25 MILILITRE(S), 1 IN 4 HOUR) (2MG/ML CONC. 30ML)
     Route: 048
  20. ATIVAN [Concomitant]
     Active Substance: LORAZEPAM
     Indication: Anxiety
  21. ATIVAN [Concomitant]
     Active Substance: LORAZEPAM
     Indication: Insomnia
  22. MAGNESIUM [Concomitant]
     Active Substance: MAGNESIUM
     Dosage: 600 MILLIGRAM(S) (600 MILLIGRAM(S), 1 IN 1 DAY)
     Route: 048
  23. METAMUCIL THERAPY FOR REGULARITY [Concomitant]
     Active Substance: PSYLLIUM HUSK
     Dosage: (1 IN 1 DAY), 1 PACKET
     Route: 048
  24. DOXYCYCLINE [Concomitant]
     Active Substance: DOXYCYCLINE\DOXYCYCLINE HYCLATE
     Dosage: 100 MILLIGRAM
  25. ZOFRAN [Concomitant]
     Active Substance: ONDANSETRON HYDROCHLORIDE
     Indication: Nausea
     Dosage: 24 MILLIGRAM, QD (ONCE A DAY)
     Route: 048

REACTIONS (35)
  - Deep vein thrombosis [Unknown]
  - Alopecia [Not Recovered/Not Resolved]
  - Weight decreased [Recovering/Resolving]
  - Decreased appetite [Recovering/Resolving]
  - Kidney infection [Unknown]
  - Pulmonary artery thrombosis [Unknown]
  - Haematuria [Unknown]
  - Febrile neutropenia [Unknown]
  - Atelectasis [Unknown]
  - Hypotension [Unknown]
  - Pancytopenia [Recovered/Resolved]
  - Hydronephrosis [Unknown]
  - Hypomagnesaemia [Unknown]
  - Sacral pain [Unknown]
  - Neuropathy peripheral [Unknown]
  - Intentional dose omission [Unknown]
  - Hypertension [Unknown]
  - Contrast media allergy [Not Recovered/Not Resolved]
  - Dizziness [Unknown]
  - Nausea [Recovering/Resolving]
  - Fatigue [Not Recovered/Not Resolved]
  - Diarrhoea [Recovering/Resolving]
  - Ageusia [Unknown]
  - Procedural pain [Unknown]
  - Epistaxis [Unknown]
  - Blood calcium decreased [Unknown]
  - Hyperaesthesia [Unknown]
  - Swelling [Unknown]
  - Muscle strain [Unknown]
  - Oedema [Unknown]
  - White blood cell count decreased [Unknown]
  - Inappropriate schedule of product administration [Unknown]
  - Gastrointestinal disorder [Unknown]
  - Dysphagia [Unknown]
  - Rash pruritic [Unknown]

NARRATIVE: CASE EVENT DATE: 20230101
